FAERS Safety Report 11536602 (Version 1)
Quarter: 2015Q3

REPORT INFORMATION
  Report Type: Spontaneous
  Country: US (occurrence: None)
  Receive Date: 20150921
  Receipt Date: 20150921
  Transmission Date: 20151125
  Serious: Yes (Hospitalization)
  Sender: FDA-Public Use
  Company Number: None

PATIENT
  Age: 60 Year
  Sex: Female

DRUGS (3)
  1. RIBAVIRAN 200 MG [Suspect]
     Active Substance: RIBAVIRIN
     Indication: HEPATITIS C
     Route: 048
     Dates: start: 20150912, end: 20150918
  2. DIALYSIS [Concomitant]
     Active Substance: UNSPECIFIED INGREDIENT
  3. VIEKIRA PAK [Suspect]
     Active Substance: DASABUVIR\OMBITASVIR\PARITAPREVIR\RITONAVIR
     Indication: HEPATITIS C
     Dosage: 1 PACK
     Route: 048
     Dates: start: 20150912, end: 20150918

REACTIONS (3)
  - Blood pressure increased [None]
  - Dialysis related complication [None]
  - Chest pain [None]

NARRATIVE: CASE EVENT DATE: 20150914
